FAERS Safety Report 4555126-9 (Version None)
Quarter: 2005Q1

REPORT INFORMATION
  Report Type: 
  Country: None (occurrence: None)
  Receive Date: 20041228
  Receipt Date: 20040517
  Transmission Date: 20050727
  Serious: Yes (Other)
  Sender: FDA-Public Use
  Company Number: PHEH2004US05474

PATIENT
  Age: 48 Year
  Sex: Female

DRUGS (4)
  1. AREDIA [Suspect]
     Indication: METASTASES TO BONE
     Dosage: 90 MG, QMO
     Dates: start: 19980801, end: 20040325
  2. LUPRON [Concomitant]
  3. SAMARIUM                 [153 SM] LEXIDRONAM PENTASODIUM [Concomitant]
  4. FEMARA [Concomitant]

REACTIONS (3)
  - JAW OPERATION [None]
  - OSTEOMYELITIS ACUTE [None]
  - OSTEONECROSIS [None]
